FAERS Safety Report 10958426 (Version 2)
Quarter: 2015Q2

REPORT INFORMATION
  Report Type: Spontaneous
  Country: US (occurrence: US)
  Receive Date: 20150326
  Receipt Date: 20150408
  Transmission Date: 20150821
  Serious: Yes (Other)
  Sender: FDA-Public Use
  Company Number: US-GLAXOSMITHKLINE-US2015GSK039547

PATIENT
  Sex: Female

DRUGS (1)
  1. TANZEUM [Suspect]
     Active Substance: ALBIGLUTIDE
     Indication: PRODUCT USED FOR UNKNOWN INDICATION
     Dosage: UNK
     Dates: end: 201502

REACTIONS (8)
  - Blood glucose decreased [Recovering/Resolving]
  - Incorrect product storage [Unknown]
  - Diabetes mellitus inadequate control [Recovering/Resolving]
  - Product quality issue [Unknown]
  - Blood glucose increased [Recovering/Resolving]
  - Vision blurred [Unknown]
  - Device use error [Unknown]
  - Malaise [Unknown]
